FAERS Safety Report 24122004 (Version 3)
Quarter: 2024Q4

REPORT INFORMATION
  Report Type: Report from Study
  Country: CN (occurrence: CN)
  Receive Date: 20240722
  Receipt Date: 20241224
  Transmission Date: 20250115
  Serious: Yes (Other)
  Sender: ROCHE
  Company Number: CN-ROCHE-3573987

PATIENT
  Age: 71 Year
  Sex: Female
  Weight: 64.7 kg

DRUGS (20)
  1. POLATUZUMAB VEDOTIN [Suspect]
     Active Substance: POLATUZUMAB VEDOTIN
     Indication: Diffuse large B-cell lymphoma
     Route: 065
     Dates: start: 20240117, end: 20240117
  2. ALECTINIB [Suspect]
     Active Substance: ALECTINIB
     Indication: Diffuse large B-cell lymphoma
     Route: 042
     Dates: start: 20240116, end: 20240223
  3. RITUXIMAB [Suspect]
     Active Substance: RITUXIMAB
     Indication: Diffuse large B-cell lymphoma
     Route: 065
     Dates: start: 20240116, end: 20240116
  4. RITUXIMAB [Suspect]
     Active Substance: RITUXIMAB
     Route: 065
     Dates: start: 20240117, end: 20240117
  5. RITUXIMAB [Suspect]
     Active Substance: RITUXIMAB
     Route: 065
     Dates: start: 20240224, end: 20240224
  6. RITUXIMAB [Suspect]
     Active Substance: RITUXIMAB
     Route: 065
     Dates: start: 20240225, end: 20240225
  7. RITUXIMAB [Suspect]
     Active Substance: RITUXIMAB
     Route: 065
     Dates: start: 20240404, end: 20240404
  8. RITUXIMAB [Suspect]
     Active Substance: RITUXIMAB
     Route: 065
     Dates: start: 20240514, end: 20240514
  9. VENCLEXTA [Suspect]
     Active Substance: VENETOCLAX
     Indication: Diffuse large B-cell lymphoma
     Route: 065
     Dates: start: 20240116, end: 20240223
  10. RECOMBINANT HUMAN GRANULOCYTE COLONY STIMULATING FACTOR INJECTION (RHG [Concomitant]
     Dates: start: 20240119
  11. RECOMBINANT HUMAN GRANULOCYTE COLONY STIMULATING FACTOR INJECTION (RHG [Concomitant]
     Dates: start: 20240223, end: 20240223
  12. POLYETHYLENE GLYCOL RECOMBINANT HUMAN GRANULOCYTE STIMULATING FACTOR ( [Concomitant]
     Dates: start: 20240223
  13. POLYETHYLENE GLYCOL RECOMBINANT HUMAN GRANULOCYTE STIMULATING FACTOR ( [Concomitant]
     Route: 058
     Dates: start: 20240224, end: 20240226
  14. LEUCOGEN [Concomitant]
     Active Substance: LEUCOGEN
     Route: 048
     Dates: start: 20240226
  15. SULFAMETHOXAZOLE [Concomitant]
     Active Substance: SULFAMETHOXAZOLE
     Route: 048
     Dates: start: 20240118
  16. LIDOCAINE [Concomitant]
     Active Substance: LIDOCAINE
     Route: 058
     Dates: start: 20240221, end: 20240221
  17. METHYLPREDNISOLONE SODIUM SUCCINATE [Concomitant]
     Active Substance: METHYLPREDNISOLONE SODIUM SUCCINATE
     Route: 042
     Dates: start: 20240224, end: 20240225
  18. OMEPRAZOLE [Concomitant]
     Active Substance: OMEPRAZOLE
     Route: 048
     Dates: start: 20240224, end: 20240225
  19. PROMETHAZINE [Concomitant]
     Active Substance: PROMETHAZINE HYDROCHLORIDE
     Route: 030
     Dates: start: 20240224, end: 20240226
  20. ACETAMINOPHEN [Concomitant]
     Active Substance: ACETAMINOPHEN
     Route: 048
     Dates: start: 20240224, end: 20240226

REACTIONS (5)
  - Lymphocyte count decreased [Not Recovered/Not Resolved]
  - White blood cell count decreased [Recovered/Resolved]
  - Neutrophil count decreased [Recovered/Resolved]
  - Pyrexia [Recovered/Resolved]
  - Hypocalcaemia [Recovered/Resolved]

NARRATIVE: CASE EVENT DATE: 20240117
